FAERS Safety Report 10162592 (Version 25)
Quarter: 2016Q4

REPORT INFORMATION
  Report Type: Report from Study
  Country: CA (occurrence: CA)
  Receive Date: 20140509
  Receipt Date: 20161123
  Transmission Date: 20170206
  Serious: Yes (Death, Hospitalization, Other)
  Sender: FDA-Public Use
  Company Number: PHHY2014CA005178

PATIENT
  Age: 53 Year
  Sex: Male

DRUGS (8)
  1. SANDOSTATIN LAR DEPOT [Suspect]
     Active Substance: OCTREOTIDE ACETATE
     Dosage: 40 MG, TIW (EVERY 3 WEEKS)
     Route: 030
     Dates: start: 20150728
  2. PANTOLOC//PANTOPRAZOLE SODIUM SESQUIHYDRATE [Concomitant]
     Active Substance: PANTOPRAZOLE SODIUM
     Indication: PRODUCT USED FOR UNKNOWN INDICATION
     Route: 065
  3. VANCOMYCIN [Concomitant]
     Active Substance: VANCOMYCIN
     Indication: PRODUCT USED FOR UNKNOWN INDICATION
     Dosage: UNK UNK, BID
     Route: 042
  4. SANDOSTATIN LAR DEPOT [Suspect]
     Active Substance: OCTREOTIDE ACETATE
     Indication: PANCREATIC NEUROENDOCRINE TUMOUR
     Dosage: 30 MG, QMO (ONCE MONTH)
     Route: 030
     Dates: start: 20131216, end: 20150407
  5. INSULIN [Concomitant]
     Active Substance: INSULIN NOS
     Indication: PRODUCT USED FOR UNKNOWN INDICATION
     Route: 065
  6. LIPASE [Concomitant]
     Active Substance: LIPASE
     Indication: PRODUCT USED FOR UNKNOWN INDICATION
     Route: 065
  7. SANDOSTATIN LAR DEPOT [Suspect]
     Active Substance: OCTREOTIDE ACETATE
     Dosage: 30 MG, EVERY 3 WEEKS
     Route: 030
     Dates: start: 20150504, end: 20150706
  8. CEFUROXIME. [Concomitant]
     Active Substance: CEFUROXIME
     Indication: PRODUCT USED FOR UNKNOWN INDICATION
     Dosage: 1 DF, BID, FOR 10 DAYS
     Route: 065

REACTIONS (33)
  - Dizziness [Recovered/Resolved]
  - Blood calcium decreased [Recovered/Resolved]
  - Intestinal obstruction [Unknown]
  - Infection [Unknown]
  - Blood pressure decreased [Unknown]
  - Nephrolithiasis [Unknown]
  - Body temperature decreased [Unknown]
  - Dysarthria [Unknown]
  - Blood pressure systolic increased [Unknown]
  - Diarrhoea [Unknown]
  - Inappropriate schedule of drug administration [Unknown]
  - Blood calcium increased [Recovered/Resolved]
  - Abdominal infection [Unknown]
  - Body temperature increased [Recovered/Resolved]
  - Stoma site erythema [Unknown]
  - Fatigue [Unknown]
  - Infected fistula [Unknown]
  - Wrong technique in product usage process [Unknown]
  - Death [Fatal]
  - Delayed recovery from anaesthesia [Unknown]
  - Sialoadenitis [Unknown]
  - White blood cell count increased [Unknown]
  - Headache [Recovered/Resolved]
  - Blood calcium increased [Recovering/Resolving]
  - Blood pressure diastolic decreased [Unknown]
  - Blood electrolytes abnormal [Unknown]
  - Therapeutic response decreased [Unknown]
  - Biliary tract infection [Unknown]
  - Gastrointestinal haemorrhage [Unknown]
  - Disease complication [Unknown]
  - Blood phosphorus decreased [Unknown]
  - Nausea [Recovered/Resolved]
  - Pyrexia [Unknown]

NARRATIVE: CASE EVENT DATE: 20140113
